FAERS Safety Report 6173885-9 (Version None)
Quarter: 2009Q2

REPORT INFORMATION
  Report Type: 
  Country: None (occurrence: None)
  Receive Date: 20090430
  Receipt Date: 20090417
  Transmission Date: 20091009
  Serious: Yes (Hospitalization, Other)
  Sender: FDA-Public Use
  Company Number: US-PFIZER INC-2009162194

PATIENT
  Sex: Female
  Weight: 73.016 kg

DRUGS (12)
  1. CHANTIX [Suspect]
     Indication: SMOKING CESSATION THERAPY
     Dosage: UNK
     Route: 048
     Dates: start: 20080101, end: 20080101
  2. PLAVIX [Concomitant]
     Dosage: UNK
  3. ASPIRIN [Concomitant]
     Dosage: UNK
  4. ATORVASTATIN CALCIUM [Concomitant]
     Dosage: UNK
  5. FLUPHENAZINE [Concomitant]
     Dosage: UNK
  6. LISINOPRIL [Concomitant]
     Dosage: UNK
  7. METHIMAZOLE [Concomitant]
     Dosage: UNK
  8. METOPROLOL TARTRATE [Concomitant]
     Dosage: UNK
  9. PROTONIX [Concomitant]
     Dosage: UNK
  10. SEROQUEL [Concomitant]
     Dosage: UNK
  11. TOLTERODINE TARTRATE [Concomitant]
     Dosage: UNK
  12. TOPAMAX [Concomitant]
     Dosage: UNK

REACTIONS (2)
  - ABDOMINAL DISCOMFORT [None]
  - FOOD POISONING [None]
